FAERS Safety Report 7522396-4 (Version None)
Quarter: 2011Q2

REPORT INFORMATION
  Report Type: 
  Country: None (occurrence: None)
  Receive Date: 20110603
  Receipt Date: 20110520
  Transmission Date: 20111010
  Serious: Yes (Hospitalization)
  Sender: FDA-Public Use
  Company Number: FR-JNJFOC-20110200950

PATIENT
  Age: 41 Year
  Sex: Female
  Weight: 55 kg

DRUGS (6)
  1. REMICADE [Suspect]
     Indication: SMALL INTESTINAL OBSTRUCTION
     Route: 042
     Dates: start: 20100130
  2. REMICADE [Suspect]
     Indication: CROHN'S DISEASE
     Route: 042
     Dates: start: 20100130
  3. REMICADE [Suspect]
     Route: 042
     Dates: start: 20100414
  4. REMICADE [Suspect]
     Route: 042
     Dates: start: 20100414
  5. REMICADE [Suspect]
     Route: 042
     Dates: start: 20100217
  6. REMICADE [Suspect]
     Route: 042
     Dates: start: 20100217

REACTIONS (2)
  - ANASTOMOTIC STENOSIS [None]
  - ILEOSTOMY CLOSURE [None]
